FAERS Safety Report 6931436 (Version 5)
Quarter: 2013Q3

REPORT INFORMATION
  Report Type: Spontaneous
  Country: US (occurrence: US)
  Receive Date: 20090309
  Receipt Date: 20130809
  Transmission Date: 20140515
  Serious: Yes (Other)
  Sender: FDA-Public Use
  Company Number: US-ROCHE-596095

PATIENT
  Age: 14 Year
  Sex: Male
  Weight: 77.1 kg

DRUGS (2)
  1. ACCUTANE [Suspect]
     Indication: ACNE
     Route: 065
     Dates: start: 19960130, end: 19960806
  2. ERYTHROMYCIN [Concomitant]
     Indication: ACNE
     Route: 065

REACTIONS (18)
  - Colitis ulcerative [Unknown]
  - Crohn^s disease [Unknown]
  - Inflammatory bowel disease [Unknown]
  - Oesophagitis [Unknown]
  - Hiatus hernia [Unknown]
  - Irritable bowel syndrome [Unknown]
  - Depression [Unknown]
  - Blood cholesterol decreased [Recovered/Resolved]
  - Skin irritation [Unknown]
  - Anaemia [Recovered/Resolved]
  - Oral herpes [Unknown]
  - Stomatitis [Unknown]
  - Gastrooesophageal reflux disease [Unknown]
  - Lip dry [Unknown]
  - Dry eye [Unknown]
  - Lethargy [Unknown]
  - Asthenia [Unknown]
  - Dry mouth [Unknown]
